FAERS Safety Report 15415260 (Version 1)
Quarter: 2018Q3

REPORT INFORMATION
  Report Type: Spontaneous
  Country: US (occurrence: US)
  Receive Date: 20180921
  Receipt Date: 20180921
  Transmission Date: 20181010
  Serious: No
  Sender: FDA-Public Use
  Company Number: US-009507513-1611USA014232

PATIENT
  Age: 29 Year
  Sex: Female

DRUGS (3)
  1. ISENTRESS [Suspect]
     Active Substance: RALTEGRAVIR POTASSIUM
     Dosage: TOTAL DAILY DOSE: 800
     Route: 048
  2. EMTRICITABINE [Suspect]
     Active Substance: EMTRICITABINE
     Dosage: UNK
  3. TENOFOVIR DISOPROXIL FUMARATE. [Suspect]
     Active Substance: TENOFOVIR DISOPROXIL FUMARATE
     Dosage: TOTAL DAILY DOSE: 1
     Route: 048

REACTIONS (1)
  - Maternal exposure during pregnancy [Recovered/Resolved]
